FAERS Safety Report 15409768 (Version 2)
Quarter: 2018Q4

REPORT INFORMATION
  Report Type: Spontaneous
  Country: JP (occurrence: JP)
  Receive Date: 20180920
  Receipt Date: 20181005
  Transmission Date: 20190204
  Serious: Yes (Death, Hospitalization)
  Sender: FDA-Public Use
  Company Number: JP-ASTRAZENECA-2018SF12107

PATIENT
  Age: 75 Year
  Sex: Male
  Weight: 50 kg

DRUGS (1)
  1. TAGRISSO [Suspect]
     Active Substance: OSIMERTINIB
     Indication: NON-SMALL CELL LUNG CANCER
     Route: 048
     Dates: start: 20180607, end: 20180828

REACTIONS (2)
  - Pulmonary toxicity [Unknown]
  - Aortic dissection [Fatal]

NARRATIVE: CASE EVENT DATE: 20180828
